FAERS Safety Report 16346746 (Version 2)
Quarter: 2019Q2

REPORT INFORMATION
  Report Type: Report from Study
  Country: FR (occurrence: FR)
  Receive Date: 20190523
  Receipt Date: 20190606
  Transmission Date: 20190711
  Serious: Yes (Death, Hospitalization)
  Sender: FDA-Public Use
  Company Number: FR-ROCHE-2324185

PATIENT
  Age: 61 Year
  Sex: Male
  Weight: 51 kg

DRUGS (1)
  1. ATEZOLIZUMAB. [Suspect]
     Active Substance: ATEZOLIZUMAB
     Indication: BLADDER CANCER
     Route: 042
     Dates: start: 20170215

REACTIONS (3)
  - Diarrhoea [Not Recovered/Not Resolved]
  - Constipation [Unknown]
  - Haematuria [Unknown]

NARRATIVE: CASE EVENT DATE: 20170403
